FAERS Safety Report 14826671 (Version 3)
Quarter: 2019Q1

REPORT INFORMATION
  Report Type: Spontaneous
  Country: US (occurrence: US)
  Receive Date: 20180430
  Receipt Date: 20190129
  Transmission Date: 20190417
  Serious: No
  Sender: FDA-Public Use
  Company Number: US-PFIZER INC-2018174620

PATIENT
  Age: 69 Year
  Sex: Female
  Weight: 68 kg

DRUGS (7)
  1. IBRANCE [Suspect]
     Active Substance: PALBOCICLIB
     Indication: BREAST CANCER STAGE IV
     Dosage: 125 MG, 1X/DAY FOR 11 DAYS
     Route: 048
     Dates: start: 20180201, end: 20180212
  2. IBRANCE [Suspect]
     Active Substance: PALBOCICLIB
     Dosage: 100 MG, UNK
  3. FLINTSTONES [Concomitant]
     Dosage: 1 DF, DAILY (TOOK 2 BEFORE SURGERY AND THEN WENT BACK TO ONE)
     Route: 048
  4. POTASSIUM [Concomitant]
     Active Substance: POTASSIUM
     Dosage: UNK
  5. CALCIUM [Concomitant]
     Active Substance: CALCIUM
     Dosage: UNK
  6. LETROZOLE. [Concomitant]
     Active Substance: LETROZOLE
     Indication: BREAST CANCER STAGE IV
     Dosage: 2.5 MG, DAILY
     Route: 048
     Dates: start: 201709
  7. IBRANCE [Suspect]
     Active Substance: PALBOCICLIB
     Dosage: 75 MG, CYCLIC (ONE CAPSULE A DAY BY MOUTH FOR 21 DAYS AND THEN 7 DAYS OFF)

REACTIONS (2)
  - White blood cell count decreased [Recovering/Resolving]
  - Breast disorder female [Unknown]

NARRATIVE: CASE EVENT DATE: 2018
